FAERS Safety Report 6314034-3 (Version None)
Quarter: 2009Q3

REPORT INFORMATION
  Report Type: 
  Country: None (occurrence: None)
  Receive Date: 20090818
  Receipt Date: 20090707
  Transmission Date: 20100115
  Serious: Yes (Other)
  Sender: FDA-Public Use
  Company Number: PHHY2009GB19734

PATIENT
  Sex: Male

DRUGS (4)
  1. TEGRETOL [Suspect]
     Indication: EPILEPSY
     Dosage: UNK
     Dates: start: 20081201
  2. TEGRETOL [Suspect]
     Dosage: 300 MG, BID
  3. TRILEPTAL [Suspect]
     Dosage: 300 MG, BID
  4. TRILEPTAL [Suspect]
     Dosage: 600 MG, BID
     Dates: start: 20090519

REACTIONS (5)
  - ARTHRALGIA [None]
  - EPILEPSY [None]
  - GOUT [None]
  - OEDEMA PERIPHERAL [None]
  - PAIN IN EXTREMITY [None]
